FAERS Safety Report 9712661 (Version 1)
Quarter: 2013Q4

REPORT INFORMATION
  Report Type: Spontaneous
  Country: AU (occurrence: AU)
  Receive Date: 20131126
  Receipt Date: 20131126
  Transmission Date: 20140711
  Serious: Yes (Hospitalization)
  Sender: FDA-Public Use
  Company Number: AU-GE HEALTHCARE MEDICAL DIAGNOSTICS-OMPQ-PR-1311S-1349

PATIENT
  Age: 63 Year
  Sex: Female
  Weight: 60 kg

DRUGS (2)
  1. OMNIPAQUE [Suspect]
     Indication: PULMONARY MASS
     Route: 042
     Dates: start: 20131120, end: 20131120
  2. OMNIPAQUE [Suspect]
     Indication: DIAGNOSTIC PROCEDURE

REACTIONS (3)
  - Erythema [Recovered/Resolved]
  - Eye swelling [Recovered/Resolved]
  - Nausea [Recovered/Resolved]
